FAERS Safety Report 9109722 (Version 1)
Quarter: 2013Q1

REPORT INFORMATION
  Report Type: Spontaneous
  Country: US (occurrence: US)
  Receive Date: 20130222
  Receipt Date: 20130222
  Transmission Date: 20140127
  Serious: No
  Sender: FDA-Public Use
  Company Number: US-PFIZER INC-2013065087

PATIENT
  Age: 74 Year
  Sex: Male
  Weight: 74.38 kg

DRUGS (4)
  1. MORPHINE SULFATE [Suspect]
  2. TRAMADOL [Suspect]
  3. CODEINE [Suspect]
  4. PENICILLIN NOS [Suspect]

REACTIONS (1)
  - Drug hypersensitivity [Unknown]
